FAERS Safety Report 6151250-8 (Version None)
Quarter: 2009Q2

REPORT INFORMATION
  Report Type: 
  Country: None (occurrence: None)
  Receive Date: 20090410
  Receipt Date: 20090331
  Transmission Date: 20091009
  Serious: Yes (Hospitalization)
  Sender: FDA-Public Use
  Company Number: US-PFIZER INC-2009192524

PATIENT
  Sex: Female

DRUGS (1)
  1. GEODON [Suspect]

REACTIONS (5)
  - BALANCE DISORDER [None]
  - BLOOD SODIUM DECREASED [None]
  - RENAL PAIN [None]
  - VISION BLURRED [None]
  - VOMITING [None]
